FAERS Safety Report 13993645 (Version 1)
Quarter: 2017Q3

REPORT INFORMATION
  Report Type: Spontaneous
  Country: NL (occurrence: NL)
  Receive Date: 20170920
  Receipt Date: 20170920
  Transmission Date: 20171128
  Serious: Yes (Other)
  Sender: FDA-Public Use
  Company Number: NL-TEVA-807944ROM

PATIENT
  Sex: Female

DRUGS (2)
  1. SALBUTAMOL MYLAN 100 CFK-VRIJE [Suspect]
     Active Substance: ALBUTEROL
     Indication: DYSPNOEA
     Dosage: 400 MICROGRAM DAILY; INHALATION SUSENSION
  2. SALBUTAMOL MYLAN 100 CFK-VRIJE [Suspect]
     Active Substance: ALBUTEROL
     Indication: THROAT IRRITATION

REACTIONS (1)
  - Hallucination [Recovered/Resolved]
